FAERS Safety Report 13949514 (Version 2)
Quarter: 2017Q3

REPORT INFORMATION
  Report Type: Spontaneous
  Country: US (occurrence: US)
  Receive Date: 20170908
  Receipt Date: 20170915
  Transmission Date: 20171128
  Serious: No
  Sender: FDA-Public Use
  Company Number: US-JAZZ-2017-US-009595

PATIENT
  Age: 27 Year
  Sex: Male
  Weight: 68.27 kg

DRUGS (2)
  1. XYREM [Suspect]
     Active Substance: SODIUM OXYBATE
     Indication: NARCOLEPSY
     Dosage: 2.25G, BID
     Route: 048
     Dates: start: 20170719
  2. XYREM [Suspect]
     Active Substance: SODIUM OXYBATE
     Dosage: 4.5 G, BID
     Route: 048
     Dates: start: 2017

REACTIONS (13)
  - Tremor [Unknown]
  - Feeling abnormal [Unknown]
  - Poor quality sleep [Unknown]
  - Sleep attacks [Unknown]
  - Malaise [Unknown]
  - Constipation [Recovered/Resolved]
  - Sluggishness [Unknown]
  - Muscle twitching [Recovered/Resolved]
  - Nausea [Unknown]
  - Feeling hot [Unknown]
  - Fatigue [Unknown]
  - Somnolence [Unknown]
  - Blepharospasm [Unknown]

NARRATIVE: CASE EVENT DATE: 2017
